FAERS Safety Report 6385657-0 (Version None)
Quarter: 2009Q4

REPORT INFORMATION
  Report Type: 
  Country: None (occurrence: None)
  Receive Date: 20091002
  Receipt Date: 20081017
  Transmission Date: 20100525
  Serious: No
  Sender: FDA-Public Use
  Company Number: US-ASTRAZENECA-2008UW23106

PATIENT
  Age: 79 Year
  Sex: Female

DRUGS (5)
  1. ARIMIDEX [Suspect]
     Indication: BREAST CANCER FEMALE
     Route: 048
     Dates: start: 20031128, end: 20040601
  2. ARIMIDEX [Suspect]
     Route: 048
     Dates: start: 20040901
  3. ACTONEL [Concomitant]
  4. LIPITOR [Concomitant]
  5. PREVACID [Concomitant]

REACTIONS (3)
  - BONE PAIN [None]
  - MYALGIA [None]
  - ROTATOR CUFF SYNDROME [None]
